FAERS Safety Report 14635541 (Version 3)
Quarter: 2018Q2

REPORT INFORMATION
  Report Type: Spontaneous
  Country: CA (occurrence: CA)
  Receive Date: 20180314
  Receipt Date: 20180406
  Transmission Date: 20180711
  Serious: Yes (Other)
  Sender: FDA-Public Use
  Company Number: CA-PFIZER INC-2018099977

PATIENT
  Age: 82 Year
  Sex: Female

DRUGS (3)
  1. SULFASALAZINE. [Suspect]
     Active Substance: SULFASALAZINE
     Indication: RHEUMATOID ARTHRITIS
     Dosage: 750 MG, 1X/DAY
  2. PREDNISONE. [Concomitant]
     Active Substance: PREDNISONE
     Indication: RHEUMATOID ARTHRITIS
     Dosage: 5 MG, DAILY
  3. SULFASALAZINE. [Suspect]
     Active Substance: SULFASALAZINE
     Dosage: 1.5 G, DAILY
     Route: 048

REACTIONS (6)
  - Blood pressure fluctuation [Unknown]
  - Drug ineffective [Recovering/Resolving]
  - Osteoarthritis [Recovering/Resolving]
  - Nasopharyngitis [Recovering/Resolving]
  - Malaise [Unknown]
  - Respiratory tract congestion [Recovering/Resolving]
